FAERS Safety Report 18404622 (Version 1)
Quarter: 2020Q4

REPORT INFORMATION
  Report Type: Spontaneous
  Country: IT (occurrence: IT)
  Receive Date: 20201020
  Receipt Date: 20201020
  Transmission Date: 20210114
  Serious: Yes (Other)
  Sender: FDA-Public Use
  Company Number: IT-BAUSCH-BL-2020-029322

PATIENT
  Age: 43 Year
  Sex: Female

DRUGS (16)
  1. FOSAMPRENAVIR;RITONAVIR [Suspect]
     Active Substance: FOSAMPRENAVIR\RITONAVIR
     Indication: CHRONIC HEPATITIS C
     Dosage: REGIMEN BASED ON ABACAVIR, LAMIVUDINE AND FOSAMPRENAVIR/RITONAVIR
     Route: 065
     Dates: start: 200509, end: 200801
  2. INDINAVIR [Suspect]
     Active Substance: INDINAVIR
     Indication: HIV INFECTION
  3. RIBAVIRINE [Suspect]
     Active Substance: RIBAVIRIN
     Indication: HIV INFECTION
     Dosage: SECOND CYCLE
     Route: 065
     Dates: end: 200702
  4. INDINAVIR [Suspect]
     Active Substance: INDINAVIR
     Indication: CHRONIC HEPATITIS C
     Dosage: PI-BASED HAART
     Route: 065
     Dates: start: 199806, end: 199809
  5. SAQUINAVIR [Suspect]
     Active Substance: SAQUINAVIR
     Indication: HIV INFECTION
  6. ABACAVIR. [Concomitant]
     Active Substance: ABACAVIR
     Indication: HIV INFECTION
  7. PEGINTERFERON ALFA-2A. [Suspect]
     Active Substance: PEGINTERFERON ALFA-2A
     Indication: HIV INFECTION
     Dosage: FIRST CYCLE
     Route: 065
     Dates: start: 200607, end: 200610
  8. ZIDOVUDINE. [Concomitant]
     Active Substance: ZIDOVUDINE
     Indication: HIV INFECTION
  9. LAMIVUDINE. [Suspect]
     Active Substance: LAMIVUDINE
     Indication: CHRONIC HEPATITIS C
     Dosage: REGIMEN BASED ON ABACAVIR, LAMIVUDINE AND FOSAMPRENAVIR/RITONAVIR
     Route: 065
     Dates: start: 200509, end: 200801
  10. ZIDOVUDINE. [Concomitant]
     Active Substance: ZIDOVUDINE
     Indication: HEPATITIS C
     Dosage: PI-BASED HAART
     Route: 065
     Dates: start: 199806, end: 2000
  11. PEGINTERFERON ALFA-2A. [Suspect]
     Active Substance: PEGINTERFERON ALFA-2A
     Indication: CHRONIC HEPATITIS C
     Dosage: SECOND CYCLE
     Route: 065
     Dates: start: 200612, end: 200702
  12. FOSAMPRENAVIR;RITONAVIR [Suspect]
     Active Substance: FOSAMPRENAVIR\RITONAVIR
     Indication: HIV INFECTION
     Dosage: REGIMEN BASED ON ABACAVIR, LAMIVUDINE AND FOSAMPRENAVIR/RITONAVIR
     Route: 065
     Dates: start: 200509
  13. LAMIVUDINE. [Suspect]
     Active Substance: LAMIVUDINE
     Indication: HIV INFECTION
     Dosage: REGIMEN BASED ON ABACAVIR, LAMIVUDINE AND FOSAMPRENAVIR/RITONAVIR
     Route: 065
     Dates: start: 200509
  14. SAQUINAVIR [Suspect]
     Active Substance: SAQUINAVIR
     Indication: CHRONIC HEPATITIS C
     Dosage: PI-BASED HAART
     Route: 065
     Dates: start: 199809, end: 2000
  15. RIBAVIRINE [Suspect]
     Active Substance: RIBAVIRIN
     Indication: CHRONIC HEPATITIS C
     Dosage: FIRST CYCLE
     Route: 065
     Dates: start: 200607, end: 200610
  16. ABACAVIR. [Concomitant]
     Active Substance: ABACAVIR
     Indication: HEPATITIS C
     Dosage: NNRTIS (D4T/DDI/ABC)
     Route: 065
     Dates: start: 200210, end: 200801

REACTIONS (2)
  - Hepatotoxicity [Recovering/Resolving]
  - Therapy non-responder [Unknown]

NARRATIVE: CASE EVENT DATE: 200607
